FAERS Safety Report 7963202-3 (Version None)
Quarter: 2011Q4

REPORT INFORMATION
  Report Type: 
  Country: None (occurrence: None)
  Receive Date: 20111208
  Receipt Date: 20111201
  Transmission Date: 20120403
  Serious: Yes (Hospitalization)
  Sender: FDA-Public Use
  Company Number: US-BIOGENIDEC-2011BI019144

PATIENT
  Age: 50 Year
  Sex: Female

DRUGS (1)
  1. AVONEX [Suspect]
     Indication: MULTIPLE SCLEROSIS
     Route: 030
     Dates: start: 20090601, end: 20110426

REACTIONS (4)
  - DEMYELINATION [None]
  - MULTIPLE SCLEROSIS RELAPSE [None]
  - CATARACT [None]
  - STEROID WITHDRAWAL SYNDROME [None]
